FAERS Safety Report 6296719-0 (Version None)
Quarter: 2009Q3

REPORT INFORMATION
  Report Type: 
  Country: None (occurrence: None)
  Receive Date: 20090804
  Receipt Date: 20090728
  Transmission Date: 20100115
  Serious: Yes (Hospitalization)
  Sender: FDA-Public Use
  Company Number: US-AVENTIS-200916603US

PATIENT
  Sex: Female

DRUGS (11)
  1. LANTUS [Suspect]
     Dosage: DOSE: 100 UNITS
     Route: 058
     Dates: start: 20080501, end: 20090401
  2. LANTUS [Suspect]
     Route: 058
     Dates: start: 20090401
  3. OPTICLIK (INSULIN INJECTION PEN) [Suspect]
     Dosage: DOSE: UNK
  4. LYRICA [Concomitant]
  5. METFORMIN [Concomitant]
  6. LOTREL [Concomitant]
     Dosage: DOSE: 1 TAB
  7. ASPIRIN [Concomitant]
     Dosage: DOSE: 1 TAB
  8. LASIX [Concomitant]
  9. NOVOLOG [Concomitant]
     Dosage: DOSE: 20 UNITS
  10. POTASSIUM CHLORIDE [Concomitant]
     Dosage: DOSE: 20 MEQ
  11. ACTOS [Concomitant]

REACTIONS (2)
  - CHEST PAIN [None]
  - MENTAL STATUS CHANGES [None]
